FAERS Safety Report 9399106 (Version 1)
Quarter: 2013Q3

REPORT INFORMATION
  Report Type: Spontaneous
  Country: US (occurrence: US)
  Receive Date: 20130715
  Receipt Date: 20130715
  Transmission Date: 20140515
  Serious: No
  Sender: FDA-Public Use
  Company Number: US-B.I. PHARMACEUTICALS,INC./RIDGEFIELD-2013-BI-20210BP

PATIENT
  Sex: Female

DRUGS (4)
  1. SPIRIVA [Suspect]
     Indication: CHRONIC OBSTRUCTIVE PULMONARY DISEASE
     Dosage: 18 MCG
     Route: 048
     Dates: start: 2005
  2. DIURETICS [Concomitant]
  3. SYMBICORT [Concomitant]
     Route: 055
  4. ALBUTEROL NEBULIZER [Concomitant]

REACTIONS (3)
  - Visual acuity reduced [Not Recovered/Not Resolved]
  - Incorrect route of drug administration [Recovered/Resolved]
  - Feeling jittery [Unknown]
